FAERS Safety Report 8178642 (Version 3)
Quarter: 2012Q4

REPORT INFORMATION
  Report Type: 
  Country: US (occurrence: US)
  Receive Date: 20111013
  Receipt Date: 20121119
  Transmission Date: 20130627
  Serious: Yes (Other)
  Sender: FDA-Public Use
  Company Number: US-BAYER-2011-098209

PATIENT
  Age: 34 Year
  Sex: Female
  Weight: 56.69 kg

DRUGS (2)
  1. YAZ [Suspect]
     Indication: PREMENSTRUAL DYSPHORIC DISORDER
     Dosage: UNK
     Route: 048
     Dates: start: 200809, end: 200911
  2. YAZ [Suspect]
     Indication: PREMENSTRUAL SYNDROME

REACTIONS (4)
  - Gallbladder disorder [None]
  - Injury [None]
  - Pain [None]
  - Cholecystitis chronic [None]
